FAERS Safety Report 4517089-1 (Version None)
Quarter: 2004Q4

REPORT INFORMATION
  Report Type: 
  Country: None (occurrence: None)
  Receive Date: 20041130
  Receipt Date: 20041116
  Transmission Date: 20050328
  Serious: Yes (Life-Threatening, Hospitalization)
  Sender: FDA-Public Use
  Company Number: FR_040904825

PATIENT
  Age: 48 Year
  Sex: Female

DRUGS (3)
  1. ZYPREXA [Suspect]
     Dosage: 17.5 MG/1 DAY
     Dates: end: 20040823
  2. LITHIUM CARBONATE [Concomitant]
  3. DEPAKOTE [Concomitant]

REACTIONS (13)
  - AGITATION [None]
  - ANOREXIA [None]
  - APHASIA [None]
  - BLOOD GLUCOSE INCREASED [None]
  - CONFUSIONAL STATE [None]
  - DISTURBANCE IN ATTENTION [None]
  - HYPERNATRAEMIA [None]
  - INCONTINENCE [None]
  - MUTISM [None]
  - NEPHROGENIC DIABETES INSIPIDUS [None]
  - OVERDOSE [None]
  - PYREXIA [None]
  - TREMOR [None]
